FAERS Safety Report 16046781 (Version 1)
Quarter: 2019Q1

REPORT INFORMATION
  Report Type: Report from Study
  Country: IL (occurrence: IL)
  Receive Date: 20190307
  Receipt Date: 20190307
  Transmission Date: 20190418
  Serious: No
  Sender: FDA-Public Use
  Company Number: IL-ROCHE-2276541

PATIENT
  Sex: Male

DRUGS (4)
  1. CANNABIS [Concomitant]
     Active Substance: CANNABIS SATIVA SUBSP. INDICA TOP
  2. FAMPYRA [Concomitant]
     Active Substance: DALFAMPRIDINE
  3. OCREVUS [Suspect]
     Active Substance: OCRELIZUMAB
     Indication: RELAPSING MULTIPLE SCLEROSIS
     Dosage: ONCE EVERY 6 MONTHS
     Route: 042
     Dates: start: 20170830
  4. DETRUSITOL [Concomitant]
     Active Substance: TOLTERODINE TARTRATE

REACTIONS (1)
  - Urinary tract infection [Not Recovered/Not Resolved]
